FAERS Safety Report 20722058 (Version 1)
Quarter: 2022Q2

REPORT INFORMATION
  Report Type: Report from Study
  Country: IN (occurrence: IN)
  Receive Date: 20220418
  Receipt Date: 20220418
  Transmission Date: 20220720
  Serious: Yes (Hospitalization)
  Sender: FDA-Public Use
  Company Number: IN-NOVARTISPH-NVSC2021IN085460

PATIENT
  Age: 39 Year
  Sex: Male

DRUGS (11)
  1. SIMULECT [Suspect]
     Active Substance: BASILIXIMAB
     Indication: Renal transplant
     Dosage: 20 MG, 2 VIALS
     Route: 065
     Dates: start: 20210328
  2. SIMULECT [Suspect]
     Active Substance: BASILIXIMAB
     Dosage: 20 MG, UNKNOWN
     Route: 065
     Dates: start: 20210401, end: 20210402
  3. METHYLPREDNISOLONE [Concomitant]
     Active Substance: METHYLPREDNISOLONE
     Indication: Product used for unknown indication
     Dosage: UNK
     Route: 065
     Dates: start: 20210328
  4. TACROLIMUS [Concomitant]
     Active Substance: TACROLIMUS
     Indication: Product used for unknown indication
     Dosage: UNK
     Route: 065
  5. PREDNISOLONE [Concomitant]
     Active Substance: PREDNISOLONE
     Indication: Product used for unknown indication
     Dosage: 20 MG, QD (9 AM AFTER BREAKFAST)
     Route: 065
  6. PANTOCID [Concomitant]
     Indication: Product used for unknown indication
     Dosage: 40 MG, QD, (7 AM BEFORE BREAKFAST)
     Route: 065
  7. CALCIUM CARBONATE\CHOLECALCIFEROL [Concomitant]
     Active Substance: CALCIUM CARBONATE\CHOLECALCIFEROL
     Indication: Product used for unknown indication
     Dosage: 1 DOSAGE FORM, QD (AT 1 PM)
     Route: 065
  8. SEPTRA DS [Concomitant]
     Active Substance: SULFAMETHOXAZOLE\TRIMETHOPRIM
     Indication: Product used for unknown indication
     Dosage: 0.5 DOSAGE FORM, QD (9 AM)
     Route: 065
  9. MINIPRESS [Concomitant]
     Active Substance: PRAZOSIN HYDROCHLORIDE
     Indication: Product used for unknown indication
     Dosage: 10 MG, BID, (8 AM, 8 PM)
     Route: 065
  10. ARKAMIN [Concomitant]
     Indication: Product used for unknown indication
     Dosage: 0.1 MG, TID, (8 AM, 1 PM, 8PM)
     Route: 065
  11. FLUCONAZOLE [Concomitant]
     Active Substance: FLUCONAZOLE
     Indication: Product used for unknown indication
     Dosage: 50 MG, QD, (9 AM)
     Route: 065

REACTIONS (11)
  - Polyuria [Unknown]
  - Weight decreased [Unknown]
  - Blood urea increased [Unknown]
  - Blood phosphorus increased [Unknown]
  - Haemoglobin decreased [Unknown]
  - Blood albumin decreased [Unknown]
  - Pneumonia klebsiella [Unknown]
  - Pseudomonas infection [Unknown]
  - Blood creatinine increased [Unknown]
  - Kidney transplant rejection [Unknown]
  - Weight increased [Unknown]

NARRATIVE: CASE EVENT DATE: 20210328
